FAERS Safety Report 26132853 (Version 1)
Quarter: 2025Q4

REPORT INFORMATION
  Report Type: Report from Study
  Country: ZA (occurrence: ZA)
  Receive Date: 20251209
  Receipt Date: 20251209
  Transmission Date: 20260117
  Serious: Yes (Other)
  Sender: BIOVITRUM
  Company Number: ZA-AstraZeneca-CH-01007154A

PATIENT
  Sex: Female

DRUGS (1)
  1. PALIVIZUMAB [Suspect]
     Active Substance: PALIVIZUMAB
     Indication: Respiratory syncytial virus test
     Dosage: 15 MILLIGRAM/KILOGRAM, Q4W
     Route: 030

REACTIONS (1)
  - Neonatal respiratory distress syndrome [Unknown]
